FAERS Safety Report 7203608-3 (Version None)
Quarter: 2010Q4

REPORT INFORMATION
  Report Type: 
  Country: None (occurrence: None)
  Receive Date: 20101230
  Receipt Date: 20101215
  Transmission Date: 20110411
  Serious: Yes (Hospitalization)
  Sender: FDA-Public Use
  Company Number: DE-CUBIST-2010S1001778

PATIENT
  Age: 38 Year
  Sex: Female
  Weight: 76 kg

DRUGS (4)
  1. CUBICIN [Suspect]
     Indication: PRODUCT USED FOR UNKNOWN INDICATION
     Route: 042
     Dates: start: 20100409
  2. CUBICIN [Suspect]
     Route: 042
     Dates: start: 20100409
  3. INSULIN [Concomitant]
     Indication: PRODUCT USED FOR UNKNOWN INDICATION
  4. CEFTRIAXONE [Concomitant]
     Indication: PRODUCT USED FOR UNKNOWN INDICATION

REACTIONS (2)
  - CONVULSION [None]
  - HYPOGLYCAEMIA [None]
